FAERS Safety Report 4412344-8 (Version None)
Quarter: 2004Q2

REPORT INFORMATION
  Report Type: 
  Country: None (occurrence: None)
  Receive Date: 20040630
  Receipt Date: 20040504
  Transmission Date: 20050107
  Serious: No
  Sender: FDA-Public Use
  Company Number: 04P-163-0259597-00

PATIENT
  Age: 77 Year
  Sex: Female
  Weight: 77.1115 kg

DRUGS (12)
  1. HUMIRA [Suspect]
     Indication: RHEUMATOID ARTHRITIS
     Dosage: 40 MG 2 IN 1 WK SUBCUTANEOUS
     Route: 058
     Dates: start: 20030813, end: 20031119
  2. TAMOXIFEN CITRATE [Concomitant]
  3. CLOPIDOGREL BISULFATE [Concomitant]
  4. VERAPAMIL HYDROCHLORIDE [Concomitant]
  5. DYAZIDE [Concomitant]
  6. ISOSORBIDE MONONITRATE [Concomitant]
  7. POTASSIUM CHLORIDE [Concomitant]
  8. METOPROLOL SUCCINATE [Concomitant]
  9. LORAZEPAM [Concomitant]
  10. LEVOTHYROXINE SODIUM [Concomitant]
  11. NAPROXEN SODIUM [Concomitant]
  12. ULTRACET [Concomitant]

REACTIONS (1)
  - DRUG INEFFECTIVE [None]
